FAERS Safety Report 11121045 (Version 1)
Quarter: 2015Q2

REPORT INFORMATION
  Report Type: Spontaneous
  Country: JP (occurrence: JP)
  Receive Date: 20150519
  Receipt Date: 20150519
  Transmission Date: 20150821
  Serious: Yes (Other)
  Sender: FDA-Public Use
  Company Number: JP-BEH-2014044519

PATIENT
  Sex: Female

DRUGS (2)
  1. RITUXIMAB [Concomitant]
     Active Substance: RITUXIMAB
     Indication: IMMUNE TOLERANCE INDUCTION
     Dosage: 500 MG/BODY
  2. INTRAVEOUS IMMUNE GLOBULIN [Suspect]
     Active Substance: HUMAN IMMUNOGLOBULIN G
     Indication: IMMUNE TOLERANCE INDUCTION
     Dosage: 3 TIMES

REACTIONS (5)
  - Drug ineffective for unapproved indication [Unknown]
  - Intentional overdose [Recovered/Resolved]
  - Cholecystitis [Unknown]
  - Transplantation complication [Unknown]
  - Transplant rejection [Unknown]
